FAERS Safety Report 19666089 (Version 2)
Quarter: 2021Q3

REPORT INFORMATION
  Report Type: Spontaneous
  Country: US (occurrence: US)
  Receive Date: 20210805
  Receipt Date: 20210820
  Transmission Date: 20211014
  Serious: No
  Sender: FDA-Public Use
  Company Number: US-AMGEN-USASP2021118381

PATIENT
  Age: 65 Year
  Sex: Male
  Weight: 78.5 kg

DRUGS (1)
  1. REPATHA [Suspect]
     Active Substance: EVOLOCUMAB
     Indication: BLOOD CHOLESTEROL INCREASED
     Dosage: 140 MILLIGRAM, Q2WK
     Route: 065
     Dates: start: 20210616

REACTIONS (5)
  - Injection site erythema [Unknown]
  - Wrong technique in product usage process [Unknown]
  - Drug dose omission by device [Unknown]
  - Product communication issue [Unknown]
  - Injection site pain [Unknown]

NARRATIVE: CASE EVENT DATE: 20210729
